FAERS Safety Report 23553839 (Version 2)
Quarter: 2024Q1

REPORT INFORMATION
  Report Type: Spontaneous
  Country: US (occurrence: US)
  Receive Date: 20240222
  Receipt Date: 20240223
  Transmission Date: 20240410
  Serious: Yes (Death, Other)
  Sender: FDA-Public Use
  Company Number: US-PFIZER INC-PV202400000601

PATIENT
  Age: 78 Year
  Sex: Male

DRUGS (4)
  1. BRAFTOVI [Suspect]
     Active Substance: ENCORAFENIB
     Dosage: 4 DF, DAILY (TAKE 4 CAPS DAILY #120)
  2. BRAFTOVI [Suspect]
     Active Substance: ENCORAFENIB
     Dosage: 300 MG
  3. MEKTOVI [Suspect]
     Active Substance: BINIMETINIB
     Dosage: 2 DF, 2X/DAY (TAKE 2 TABS BID (TWICE A DAY) #120)
  4. MEKTOVI [Suspect]
     Active Substance: BINIMETINIB
     Dosage: 30 MG

REACTIONS (1)
  - Death [Fatal]
